FAERS Safety Report 7628876-5 (Version None)
Quarter: 2011Q3

REPORT INFORMATION
  Report Type: 
  Country: None (occurrence: None)
  Receive Date: 20110722
  Receipt Date: 20110718
  Transmission Date: 20111222
  Serious: Yes (Death)
  Sender: FDA-Public Use
  Company Number: MX-SANOFI-AVENTIS-2011SA045877

PATIENT
  Sex: Female
  Weight: 39 kg

DRUGS (1)
  1. INSULIN GLARGINE [Suspect]
     Route: 058
     Dates: start: 20050101, end: 20100618

REACTIONS (4)
  - ROAD TRAFFIC ACCIDENT [None]
  - HYPERGLYCAEMIA [None]
  - SKULL FRACTURE [None]
  - CRANIOCEREBRAL INJURY [None]
